FAERS Safety Report 7581416-1 (Version None)
Quarter: 2011Q2

REPORT INFORMATION
  Report Type: 
  Country: None (occurrence: None)
  Receive Date: 20110629
  Receipt Date: 20110616
  Transmission Date: 20111010
  Serious: Yes (Hospitalization)
  Sender: FDA-Public Use
  Company Number: PHHY2011US40502

PATIENT
  Sex: Male

DRUGS (14)
  1. EXJADE [Suspect]
     Indication: NEOPLASM
  2. LASIX [Concomitant]
     Dosage: UNK
     Route: 042
  3. LANTUS [Concomitant]
     Dosage: 16 U, AT BEDTIME
  4. METOPROLOL TARTRATE [Concomitant]
     Dosage: 25 MG, BID
  5. LASIX [Concomitant]
     Dosage: 40 MG, QD, IN THE MORNING
  6. LANTUS [Concomitant]
     Dosage: 10 U, UNK
  7. ASPIRIN [Concomitant]
     Dosage: 325 MG, UNK
  8. OMNICEF [Concomitant]
     Dosage: 300 MG, BID
  9. LEVEMIR [Concomitant]
  10. EXJADE [Suspect]
     Indication: IRON METABOLISM DISORDER
     Dosage: 375 MG, QD
     Route: 048
  11. LANTUS [Concomitant]
     Dosage: 5 U, UNK
  12. METOPROLOL TARTRATE [Concomitant]
     Dosage: 50 MG, BID
  13. GLYBURIDE [Concomitant]
     Dosage: 5 MG,  WITH BREAKFAST
  14. NITROSTAT [Concomitant]

REACTIONS (15)
  - LIVER FUNCTION TEST ABNORMAL [None]
  - ASPARTATE AMINOTRANSFERASE INCREASED [None]
  - CYSTITIS [None]
  - ATELECTASIS [None]
  - VENTRICULAR TACHYCARDIA [None]
  - ASTHENIA [None]
  - ABASIA [None]
  - HYPOGLYCAEMIA [None]
  - BLOOD CREATININE INCREASED [None]
  - CARDIAC FAILURE CONGESTIVE [None]
  - CORONARY ARTERY DISEASE [None]
  - ALANINE AMINOTRANSFERASE INCREASED [None]
  - PNEUMONIA [None]
  - PYREXIA [None]
  - CHILLS [None]
